FAERS Safety Report 15265479 (Version 1)
Quarter: 2018Q3

REPORT INFORMATION
  Report Type: Spontaneous
  Country: US (occurrence: US)
  Receive Date: 20180723
  Receipt Date: 20180723
  Transmission Date: 20181010
  Serious: No
  Sender: FDA-Public Use
  Company Number: None

PATIENT
  Sex: Female

DRUGS (2)
  1. OLOPATADINE 0.2% OPHTH SOLN 2.5 ML [Suspect]
     Active Substance: OLOPATADINE
  2. OLOPATADINE 0.1% [Suspect]
     Active Substance: OLOPATADINE

REACTIONS (1)
  - Treatment failure [None]
